FAERS Safety Report 17367302 (Version 2)
Quarter: 2020Q1

REPORT INFORMATION
  Report Type: Report from Study
  Country: MX (occurrence: MX)
  Receive Date: 20200204
  Receipt Date: 20200205
  Transmission Date: 20200409
  Serious: Yes (Other)
  Sender: FDA-Public Use
  Company Number: NVSC2020MX024814

PATIENT
  Age: 12 Year
  Sex: Female
  Weight: 29 kg

DRUGS (2)
  1. OMNITROPE [Suspect]
     Active Substance: SOMATROPIN
     Dosage: 1 MG FROM MONDAY TO THURSDAY AND 1.3 MG FROM FRIDAY TO SUNDAY
     Route: 058
     Dates: start: 20200128
  2. OMNITROPE [Suspect]
     Active Substance: SOMATROPIN
     Indication: BODY HEIGHT BELOW NORMAL
     Dosage: UNK
     Route: 058
     Dates: start: 201907, end: 20200127

REACTIONS (7)
  - Poor quality sleep [Unknown]
  - Behavioural induced insufficient sleep syndrome [Unknown]
  - Abnormal sleep-related event [Unknown]
  - Dizziness [Not Recovered/Not Resolved]
  - Syncope [Recovered/Resolved]
  - Emotional disorder [Not Recovered/Not Resolved]
  - Drug administered in wrong device [Recovered/Resolved]

NARRATIVE: CASE EVENT DATE: 201907
